FAERS Safety Report 8007366-4 (Version None)
Quarter: 2011Q4

REPORT INFORMATION
  Report Type: 
  Country: None (occurrence: None)
  Receive Date: 20111227
  Receipt Date: 20111219
  Transmission Date: 20120403
  Serious: Yes (Hospitalization)
  Sender: FDA-Public Use
  Company Number: US-BAYER-2011-122458

PATIENT
  Age: 68 Year
  Sex: Male

DRUGS (5)
  1. METOPROLOL [Concomitant]
  2. FLOMAX [Concomitant]
  3. ASPIRIN [Suspect]
     Indication: MYOCARDIAL INFARCTION
  4. LIPITOR [Concomitant]
  5. DEXILANT [Concomitant]

REACTIONS (5)
  - HEART RATE INCREASED [None]
  - DYSPNOEA [None]
  - DYSPEPSIA [None]
  - CHEST PAIN [None]
  - COLD SWEAT [None]
